FAERS Safety Report 12549149 (Version 1)
Quarter: 2016Q3

REPORT INFORMATION
  Report Type: Spontaneous
  Country: CH (occurrence: DE)
  Receive Date: 20160712
  Receipt Date: 20160712
  Transmission Date: 20161109
  Serious: Yes (Other)
  Sender: FDA-Public Use
  Company Number: CH-LPDUSPRD-20160591

PATIENT
  Age: 38 Year
  Sex: Female

DRUGS (1)
  1. FERINJECT [Suspect]
     Active Substance: FERRIC CARBOXYMALTOSE
     Dosage: 500MG
     Route: 041
     Dates: start: 20160623, end: 20160623

REACTIONS (3)
  - Cold sweat [Unknown]
  - Circulatory collapse [Unknown]
  - Hypotension [Unknown]

NARRATIVE: CASE EVENT DATE: 20160623
